FAERS Safety Report 16804089 (Version 2)
Quarter: 2020Q1

REPORT INFORMATION
  Report Type: Spontaneous
  Country: IE (occurrence: IE)
  Receive Date: 20190913
  Receipt Date: 20200110
  Transmission Date: 20200409
  Serious: No
  Sender: FDA-Public Use
  Company Number: IE-BEH-2019106910

PATIENT
  Age: 74 Year
  Sex: Female

DRUGS (6)
  1. RESPREEZA [Suspect]
     Active Substance: .ALPHA.1-PROTEINASE INHIBITOR HUMAN
     Dosage: 3810 MILLIGRAM
     Route: 042
     Dates: start: 20191012
  2. NACL [Concomitant]
     Active Substance: SODIUM CHLORIDE
     Dosage: 50 MILLILITER FLUSH BN
     Route: 042
  3. RESPREEZA [Suspect]
     Active Substance: .ALPHA.1-PROTEINASE INHIBITOR HUMAN
     Dosage: 7620 MILLIGRAM (DOUBLE DOSE)
     Route: 042
     Dates: start: 20191218, end: 20191218
  4. WATER FOR INJECTION [Concomitant]
     Active Substance: WATER
     Dosage: 20 MILLILITER X 8 BN
     Route: 042
  5. OMNIFLUSH [Concomitant]
     Dosage: 10 MILLILITER X 2 BN
     Route: 042
  6. RESPREEZA [Suspect]
     Active Substance: .ALPHA.1-PROTEINASE INHIBITOR HUMAN
     Dosage: DOUBLE DOSE, TOT
     Route: 065
     Dates: start: 20171221, end: 20171221

REACTIONS (2)
  - No adverse event [Unknown]
  - Intentional overdose [Unknown]

NARRATIVE: CASE EVENT DATE: 20171221
